FAERS Safety Report 10277767 (Version 2)
Quarter: 2014Q3

REPORT INFORMATION
  Report Type: Report from Study
  Country: CZ (occurrence: CZ)
  Receive Date: 20140704
  Receipt Date: 20140723
  Transmission Date: 20150326
  Serious: Yes (Hospitalization)
  Sender: FDA-Public Use
  Company Number: CZ-ROCHE-CID000000003453532

PATIENT
  Age: 63 Year
  Sex: Female
  Weight: 80 kg

DRUGS (11)
  1. BENDAMUSTINE [Suspect]
     Active Substance: BENDAMUSTINE
     Indication: NON-HODGKIN^S LYMPHOMA UNSPECIFIED HISTOLOGY INDOLENT
     Dosage: AS PER PROTOCOL.
     Route: 065
     Dates: start: 20140416, end: 20140528
  2. SULFAMETHOXAZOLE/TRIMETHOPRIM [Concomitant]
     Active Substance: SULFAMETHOXAZOLE\TRIMETHOPRIM
  3. BETAHISTINE DIHYDROCHLORIDE [Concomitant]
     Active Substance: BETAHISTINE
  4. RITUXIMAB [Suspect]
     Active Substance: RITUXIMAB
     Route: 042
     Dates: start: 20140625
  5. TRANDOLAPRIL. [Concomitant]
     Active Substance: TRANDOLAPRIL
     Route: 065
     Dates: start: 1999
  6. RITUXIMAB [Suspect]
     Active Substance: RITUXIMAB
     Indication: NON-HODGKIN^S LYMPHOMA UNSPECIFIED HISTOLOGY INDOLENT
     Dosage: AS PE PROTOCOL.
     Route: 042
     Dates: start: 20140416, end: 20140528
  7. BENDAMUSTINE [Suspect]
     Active Substance: BENDAMUSTINE
     Route: 065
     Dates: start: 20140625
  8. BLINDED IDELALISIB [Suspect]
     Active Substance: IDELALISIB
     Indication: NON-HODGKIN^S LYMPHOMA UNSPECIFIED HISTOLOGY INDOLENT
     Dosage: AS PER PROTOCOL
     Route: 048
     Dates: start: 20140416, end: 20140528
  9. BLINDED IDELALISIB [Suspect]
     Active Substance: IDELALISIB
     Route: 048
     Dates: start: 20140625
  10. ACICLOVIR [Concomitant]
     Active Substance: ACYCLOVIR
     Route: 065
     Dates: start: 20140416
  11. OMEPRAZOLUM [Concomitant]
     Route: 065
     Dates: start: 20140528

REACTIONS (1)
  - Dyspepsia [Recovered/Resolved]

NARRATIVE: CASE EVENT DATE: 20140520
